FAERS Safety Report 17791973 (Version 2)
Quarter: 2020Q2

REPORT INFORMATION
  Report Type: Spontaneous
  Country: US (occurrence: US)
  Receive Date: 20200515
  Receipt Date: 20200518
  Transmission Date: 20200714
  Serious: No
  Sender: FDA-Public Use
  Company Number: US-PFIZER INC-2020193858

PATIENT
  Sex: Male

DRUGS (1)
  1. INSPRA [Suspect]
     Active Substance: EPLERENONE
     Dosage: 12.5 MG, 2X/DAY, (25 MG TABLET IN HALF AND TAKE 12.5MG TWICE DAILY)

REACTIONS (3)
  - Product taste abnormal [Unknown]
  - Abdominal pain upper [Unknown]
  - Off label use [Unknown]
